FAERS Safety Report 20017970 (Version 1)
Quarter: 2021Q4

REPORT INFORMATION
  Report Type: Spontaneous
  Country: DE (occurrence: DE)
  Receive Date: 20211101
  Receipt Date: 20211101
  Transmission Date: 20220303
  Serious: Yes (Other)
  Sender: FDA-Public Use
  Company Number: DE-LUPIN PHARMACEUTICALS INC.-2021-20984

PATIENT
  Age: 16 Year
  Sex: Female
  Weight: 52 kg

DRUGS (7)
  1. METHYLPREDNISOLONE [Suspect]
     Active Substance: METHYLPREDNISOLONE
     Indication: Sarcoidosis
     Dosage: 300 MILLIGRAM/SQ. METER (ON DAYS 1, 3, AND 5)
     Route: 042
  2. METHYLPREDNISOLONE [Suspect]
     Active Substance: METHYLPREDNISOLONE
     Indication: Acute kidney injury
  3. METHYLPREDNISOLONE [Suspect]
     Active Substance: METHYLPREDNISOLONE
     Indication: Tubulointerstitial nephritis
  4. PREDNISOLONE [Suspect]
     Active Substance: PREDNISOLONE
     Indication: Sarcoidosis
     Dosage: 80 MILLIGRAM (ON DAYS 2, 4, AND 6.)
     Route: 048
  5. PREDNISOLONE [Suspect]
     Active Substance: PREDNISOLONE
     Indication: Acute kidney injury
     Dosage: 60 MILLIGRAM, QD (FROM DAY 7, ORAL PREDNISOLONE WAS CONTINUED WITH 60MG DAILY.)
     Route: 048
  6. PREDNISOLONE [Suspect]
     Active Substance: PREDNISOLONE
     Indication: Tubulointerstitial nephritis
     Dosage: UNK (PREDNISOLONE WAS SLOWLY TAPERED)
     Route: 048
  7. METHOTREXATE [Concomitant]
     Active Substance: METHOTREXATE
     Indication: Drug therapy
     Dosage: 20 MILLIGRAM
     Route: 048

REACTIONS (4)
  - Intraocular pressure increased [Recovered/Resolved]
  - Cushing^s syndrome [Unknown]
  - Alopecia [Unknown]
  - Tremor [Unknown]
